FAERS Safety Report 9679222 (Version 1)
Quarter: 2013Q4

REPORT INFORMATION
  Report Type: Spontaneous
  Country: BR (occurrence: BR)
  Receive Date: 20131108
  Receipt Date: 20131108
  Transmission Date: 20140711
  Serious: Yes (Other)
  Sender: FDA-Public Use
  Company Number: BR-ABBVIE-13P-020-1167531-00

PATIENT
  Age: 77 Year
  Sex: Female
  Weight: 74 kg

DRUGS (5)
  1. SYNTHROID [Suspect]
     Indication: THYROID DISORDER
     Dosage: 100 MICROGRAM DAILY; ONE TABLET HALF HOUR BEFORE BREAKFAST
     Route: 048
     Dates: start: 2003
  2. SYNTHROID [Suspect]
     Dosage: 25 MICROGRAM DAILY; ONE TABLET HALF HOUR BEFORE BREAKFAST
     Route: 048
  3. SYNTHROID [Suspect]
     Route: 048
     Dates: start: 20131030
  4. CRESTOR [Concomitant]
     Indication: BLOOD CHOLESTEROL ABNORMAL
     Dosage: AT NIGHT
     Route: 048
  5. MODURETIC [Concomitant]
     Indication: PRODUCT USED FOR UNKNOWN INDICATION
     Route: 048

REACTIONS (8)
  - Knee arthroplasty [Recovering/Resolving]
  - Local swelling [Recovering/Resolving]
  - Thyroiditis [Unknown]
  - Local swelling [Unknown]
  - Oedema peripheral [Unknown]
  - Oedema peripheral [Unknown]
  - Incorrect dose administered [Unknown]
  - Thyroid disorder [Unknown]
